FAERS Safety Report 5023599-3 (Version None)
Quarter: 2006Q2

REPORT INFORMATION
  Report Type: 
  Country: None (occurrence: None)
  Receive Date: 20060612
  Receipt Date: 20060604
  Transmission Date: 20061013
  Serious: Yes (Disabling, Other)
  Sender: FDA-Public Use
  Company Number: US-AVENTIS-200614921US

PATIENT
  Sex: Female

DRUGS (7)
  1. LANTUS [Suspect]
     Indication: DIABETES MELLITUS NON-INSULIN-DEPENDENT
     Dosage: DOSE UNIT: UNITS
  2. OPTICLIK (INSULIN INJECTION PEN) [Suspect]
     Indication: DIABETES MELLITUS NON-INSULIN-DEPENDENT
     Dates: start: 20010101
  3. ALTACE [Concomitant]
     Dosage: DOSE: UNKNOWN
  4. CARDIZEM [Concomitant]
     Dosage: DOSE: UNKNOWN
  5. ISOSORBIDE [Concomitant]
     Dosage: DOSE: UNKNOWN
  6. HUMALOG [Concomitant]
     Dosage: DOSE: UNKNOWN
  7. TENEX [Concomitant]
     Dosage: DOSE: UNKNOWN

REACTIONS (4)
  - BLINDNESS [None]
  - BLOOD GLUCOSE INCREASED [None]
  - CATARACT [None]
  - RETINITIS [None]
